FAERS Safety Report 5896659-2 (Version None)
Quarter: 2008Q3

REPORT INFORMATION
  Report Type: 
  Country: None (occurrence: None)
  Receive Date: 20080924
  Receipt Date: 20071108
  Transmission Date: 20090109
  Serious: Yes (Other)
  Sender: FDA-Public Use
  Company Number: US-BAYER-200713569BWH

PATIENT
  Age: 87 Year
  Sex: Male

DRUGS (4)
  1. AVELOX [Suspect]
     Indication: PNEUMONIA
     Dosage: TOTAL DAILY DOSE: 400 MG  UNIT DOSE: 400 MG
     Route: 048
     Dates: start: 20070907, end: 20070928
  2. AUGMENTIN '125' [Concomitant]
  3. LEVAQUIN [Concomitant]
  4. PIPERACILLIN [Concomitant]

REACTIONS (2)
  - BLOOD CREATININE INCREASED [None]
  - VASCULITIS [None]
